FAERS Safety Report 8479868-8 (Version None)
Quarter: 2012Q2

REPORT INFORMATION
  Report Type: 
  Country: None (occurrence: None)
  Receive Date: 20120629
  Receipt Date: 20120618
  Transmission Date: 20120825
  Serious: Yes (Disabling, Other)
  Sender: FDA-Public Use
  Company Number: NG-MYLANLABS-2012S1012348

PATIENT

DRUGS (1)
  1. NAPROXEN [Suspect]
     Indication: ARTHRITIS
     Route: 065

REACTIONS (2)
  - OTOTOXICITY [None]
  - DEAFNESS [None]
